FAERS Safety Report 25852366 (Version 1)
Quarter: 2025Q3

REPORT INFORMATION
  Report Type: Spontaneous
  Country: US (occurrence: US)
  Receive Date: 20250926
  Receipt Date: 20250926
  Transmission Date: 20251020
  Serious: No
  Sender: PFIZER
  Company Number: US-PFIZER INC-PV202500114563

PATIENT
  Age: 64 Year
  Sex: Male

DRUGS (3)
  1. LORBRENA [Suspect]
     Active Substance: LORLATINIB
     Indication: Non-small cell lung cancer metastatic
     Dates: start: 2021
  2. LORBRENA [Suspect]
     Active Substance: LORLATINIB
  3. LORBRENA [Suspect]
     Active Substance: LORLATINIB

REACTIONS (13)
  - Cognitive disorder [Unknown]
  - Mood altered [Unknown]
  - Anger [Unknown]
  - Hunger [Unknown]
  - Weight increased [Unknown]
  - Blood cholesterol increased [Unknown]
  - Blood disorder [Unknown]
  - Memory impairment [Unknown]
  - Energy increased [Unknown]
  - Aggression [Unknown]
  - Mood swings [Unknown]
  - Speech disorder [Unknown]
  - Off label use [Unknown]
